FAERS Safety Report 9483289 (Version 1)
Quarter: 2013Q3

REPORT INFORMATION
  Report Type: Spontaneous
  Country: CA (occurrence: CA)
  Receive Date: 20130828
  Receipt Date: 20130828
  Transmission Date: 20140515
  Serious: Yes (Other)
  Sender: FDA-Public Use
  Company Number: CA-AMGEN-KDL245528

PATIENT
  Age: 51 Year
  Sex: Female

DRUGS (2)
  1. ESTROGENS CONJUGATED [Concomitant]
     Dosage: UNK UNK, UNK
  2. ENBREL [Suspect]
     Indication: PSORIATIC ARTHROPATHY
     Dosage: 25 MG, 2 TIMES/WK
     Route: 065
     Dates: start: 20050411

REACTIONS (3)
  - Breast pain [Unknown]
  - Psoriatic arthropathy [Unknown]
  - Breast mass [Not Recovered/Not Resolved]
